FAERS Safety Report 23767401 (Version 1)
Quarter: 2024Q2

REPORT INFORMATION
  Report Type: Spontaneous
  Country: JP (occurrence: JP)
  Receive Date: 20240422
  Receipt Date: 20240422
  Transmission Date: 20240716
  Serious: Yes (Hospitalization)
  Sender: FDA-Public Use
  Company Number: JP-ORGANON-O2404JPN001766

PATIENT
  Age: 74 Year
  Sex: Male
  Weight: 47.4 kg

DRUGS (18)
  1. EZETIMIBE [Suspect]
     Active Substance: EZETIMIBE
     Dosage: UNK
     Route: 048
  2. LEVOFLOXACIN [Suspect]
     Active Substance: LEVOFLOXACIN
     Indication: Pneumonia bacterial
     Dosage: 500 MILLIGRAM, QD
     Route: 048
     Dates: start: 20240118, end: 20240122
  3. PEMBROLIZUMAB [Concomitant]
     Active Substance: PEMBROLIZUMAB
     Dosage: UNK
     Route: 042
     Dates: start: 20240119
  4. NOVORAPID [Concomitant]
     Active Substance: INSULIN ASPART
     Dosage: UNK
     Route: 058
  5. PRAVASTATIN SODIUM [Concomitant]
     Active Substance: PRAVASTATIN SODIUM
     Dosage: UNK
     Route: 048
     Dates: start: 20240119
  6. VILDAGLIPTIN [Concomitant]
     Active Substance: VILDAGLIPTIN
     Dosage: UNK
     Route: 048
  7. METFORMIN HYDROCHLORIDE [Concomitant]
     Active Substance: METFORMIN HYDROCHLORIDE
     Dosage: UNK
     Route: 048
  8. LUSEOGLIFLOZIN [Concomitant]
     Active Substance: LUSEOGLIFLOZIN
     Dosage: UNK
     Route: 048
  9. TRELEGY ELLIPTA [Concomitant]
     Active Substance: FLUTICASONE FUROATE\UMECLIDINIUM BROMIDE\VILANTEROL TRIFENATATE
     Dosage: UNK
     Route: 055
  10. CODEINE PHOSPHATE [Concomitant]
     Active Substance: CODEINE PHOSPHATE
     Dosage: UNK
     Route: 048
     Dates: start: 20231209
  11. NAPROXEN [Concomitant]
     Active Substance: NAPROXEN
     Dosage: UNK
     Route: 048
     Dates: start: 20231211
  12. VONOPRAZAN FUMARATE [Concomitant]
     Active Substance: VONOPRAZAN FUMARATE
     Dosage: UNK
     Route: 048
     Dates: start: 20231211
  13. MAGNESIUM OXIDE [Concomitant]
     Active Substance: MAGNESIUM OXIDE
     Dosage: UNK
     Route: 048
     Dates: start: 20231211
  14. DAYVIGO [Concomitant]
     Active Substance: LEMBOREXANT
     Dosage: UNK
     Route: 048
     Dates: start: 20240101
  15. DIETARY SUPPLEMENT\PROBIOTICS [Concomitant]
     Active Substance: DIETARY SUPPLEMENT\PROBIOTICS NOS
     Dosage: UNK
     Route: 048
     Dates: start: 20231221
  16. TAMSULOSIN HYDROCHLORIDE [Concomitant]
     Active Substance: TAMSULOSIN HYDROCHLORIDE
     Dosage: UNK
     Route: 048
     Dates: start: 20240113
  17. MEROPENEM [Concomitant]
     Active Substance: MEROPENEM
     Dosage: 1 GRAM, Q8H
     Route: 042
     Dates: start: 20231229, end: 20240117
  18. SENNOSIDES [Concomitant]
     Active Substance: SENNOSIDES
     Dosage: UNK
     Route: 048
     Dates: start: 20231211

REACTIONS (1)
  - Neutrophil count decreased [Recovered/Resolved]

NARRATIVE: CASE EVENT DATE: 20240122
